FAERS Safety Report 7690867-6 (Version None)
Quarter: 2011Q3

REPORT INFORMATION
  Report Type: 
  Country: None (occurrence: None)
  Receive Date: 20110818
  Receipt Date: 20110808
  Transmission Date: 20111222
  Serious: Yes (Hospitalization, Other)
  Sender: FDA-Public Use
  Company Number: PHHY2011JP72232

PATIENT
  Age: 70 Year
  Sex: Female

DRUGS (5)
  1. PREDNISOLONE [Suspect]
     Indication: COLLAGEN-VASCULAR DISEASE
     Dosage: 40 MG, DAILY
     Route: 048
  2. MIZORIBINE [Suspect]
     Dosage: 150 MG, DAILY
     Route: 048
  3. CYCLOPHOSPHAMIDE [Suspect]
     Indication: COLLAGEN-VASCULAR DISEASE
     Dosage: 400 MG, TWICE
  4. PREDNISOLONE [Suspect]
     Dosage: 35 MG, DAILY
     Route: 048
  5. PREDNISOLONE [Suspect]
     Dosage: 17.5 MG, DAILY

REACTIONS (12)
  - VENTRICULAR HYPOKINESIA [None]
  - PYREXIA [None]
  - CARDIAC FAILURE CONGESTIVE [None]
  - ENDOCARDITIS [None]
  - LEFT VENTRICULAR DYSFUNCTION [None]
  - BODY TEMPERATURE DECREASED [None]
  - AORTIC STENOSIS [None]
  - DYSPNOEA [None]
  - BRAIN NATRIURETIC PEPTIDE INCREASED [None]
  - MYCOTIC ANEURYSM [None]
  - MITRAL VALVE INCOMPETENCE [None]
  - INFLAMMATION [None]
